FAERS Safety Report 17495935 (Version 1)
Quarter: 2020Q1

REPORT INFORMATION
  Report Type: Spontaneous
  Country: US (occurrence: US)
  Receive Date: 20200304
  Receipt Date: 20200304
  Transmission Date: 20200409
  Serious: No
  Sender: FDA-Public Use
  Company Number: NVSC2020US059932

PATIENT
  Age: 82 Year
  Sex: Female

DRUGS (1)
  1. AMANTADINE. [Suspect]
     Active Substance: AMANTADINE HYDROCHLORIDE
     Indication: PARKINSON^S DISEASE
     Dosage: 200 MG, QD
     Route: 065

REACTIONS (1)
  - Drug intolerance [Unknown]
